FAERS Safety Report 13462425 (Version 1)
Quarter: 2017Q2

REPORT INFORMATION
  Report Type: Spontaneous
  Country: FR (occurrence: FR)
  Receive Date: 20170420
  Receipt Date: 20170420
  Transmission Date: 20170830
  Serious: Yes (Hospitalization)
  Sender: FDA-Public Use
  Company Number: FR-PFIZER INC-2017162419

PATIENT
  Age: 61 Year
  Sex: Male

DRUGS (18)
  1. GRANOCYTE [Concomitant]
     Active Substance: LENOGRASTIM
  2. DEPO-MEDROL [Suspect]
     Active Substance: METHYLPREDNISOLONE ACETATE
     Indication: ACUTE LYMPHOCYTIC LEUKAEMIA
     Dosage: 40 MG, CYCLIC
     Route: 024
     Dates: start: 20160907
  3. SODIUM BICARBONATE. [Concomitant]
     Active Substance: SODIUM BICARBONATE
  4. PANTOPRAZOLE [Concomitant]
     Active Substance: PANTOPRAZOLE
  5. ENDOXAN /00021101/ [Concomitant]
     Active Substance: CYCLOPHOSPHAMIDE
     Indication: ACUTE LYMPHOCYTIC LEUKAEMIA
  6. KIDROLASE [Suspect]
     Active Substance: ASPARAGINASE
     Indication: ACUTE LYMPHOCYTIC LEUKAEMIA
     Dosage: 6000 IU/M2, CYCLIC
     Route: 042
     Dates: start: 20160907
  7. METHYLPREDNISOLONE MYLAN /00049602/ [Suspect]
     Active Substance: METHYLPREDNISOLONE SODIUM SUCCINATE
     Indication: ACUTE LYMPHOCYTIC LEUKAEMIA
     Dosage: 100 MG, CYCLIC
     Route: 042
     Dates: start: 20160907
  8. ZELITREX [Concomitant]
     Active Substance: VALACYCLOVIR HYDROCHLORIDE
  9. DIFFU K [Concomitant]
     Active Substance: POTASSIUM CHLORIDE
  10. DAUNORUBICIN [Concomitant]
     Active Substance: DAUNORUBICIN
     Indication: ACUTE LYMPHOCYTIC LEUKAEMIA
  11. TEMESTA /00273201/ [Concomitant]
     Active Substance: LORAZEPAM
  12. VINCRISTINE [Concomitant]
     Active Substance: VINCRISTINE
     Indication: ACUTE LYMPHOCYTIC LEUKAEMIA
  13. RITUXIMAB [Concomitant]
     Active Substance: RITUXIMAB
     Indication: ACUTE LYMPHOCYTIC LEUKAEMIA
  14. CYTARABINE. [Concomitant]
     Active Substance: CYTARABINE
  15. LERCAN [Concomitant]
     Active Substance: LERCANIDIPINE
  16. DEXAMETHASONE MYLAN [Suspect]
     Active Substance: DEXAMETHASONE
     Indication: ACUTE LYMPHOCYTIC LEUKAEMIA
     Dosage: 20 MG, CYCLIC
     Route: 042
     Dates: start: 20161021
  17. IZALGI [Concomitant]
     Active Substance: ACETAMINOPHEN\OPIUM
  18. METHOTREXATE. [Concomitant]
     Active Substance: METHOTREXATE

REACTIONS (1)
  - Diabetes mellitus [Not Recovered/Not Resolved]

NARRATIVE: CASE EVENT DATE: 201702
